FAERS Safety Report 6535377-4 (Version None)
Quarter: 2010Q1

REPORT INFORMATION
  Report Type: 
  Country: None (occurrence: None)
  Receive Date: 20100113
  Receipt Date: 20100104
  Transmission Date: 20100710
  Serious: Yes (Hospitalization, Other)
  Sender: FDA-Public Use
  Company Number: US-JNJFOC-20100101465

PATIENT
  Sex: Male
  Weight: 95.26 kg

DRUGS (2)
  1. RISPERDAL CONSTA [Suspect]
     Indication: SCHIZOPHRENIA
     Route: 065
  2. INVEGA [Suspect]
     Indication: SCHIZOPHRENIA
     Route: 065

REACTIONS (7)
  - HEADACHE [None]
  - MYALGIA [None]
  - PAIN [None]
  - RASH [None]
  - SCHIZOPHRENIA [None]
  - SKIN LESION [None]
  - WEIGHT DECREASED [None]
